FAERS Safety Report 7565604-6 (Version None)
Quarter: 2011Q2

REPORT INFORMATION
  Report Type: 
  Country: None (occurrence: None)
  Receive Date: 20110616
  Receipt Date: 20110606
  Transmission Date: 20111010
  Serious: Yes (Other)
  Sender: FDA-Public Use
  Company Number: 2011S1000270

PATIENT
  Age: 57 Year
  Sex: Male
  Weight: 87 kg

DRUGS (5)
  1. NEBIVOLOL HCL [Concomitant]
  2. LIVALO [Suspect]
     Dosage: 2 MG; PO
     Route: 048
     Dates: start: 20101210, end: 20110301
  3. ACAMPROSATE [Concomitant]
  4. CALCIUM CARBONATE [Concomitant]
  5. LEVITRA [Concomitant]

REACTIONS (4)
  - MUSCULAR WEAKNESS [None]
  - PAIN IN EXTREMITY [None]
  - ASPARTATE AMINOTRANSFERASE INCREASED [None]
  - BLOOD CREATINE PHOSPHOKINASE INCREASED [None]
